FAERS Safety Report 6199399-8 (Version None)
Quarter: 2009Q2

REPORT INFORMATION
  Report Type: 
  Country: None (occurrence: None)
  Receive Date: 20090519
  Receipt Date: 20090505
  Transmission Date: 20091009
  Serious: Yes (Hospitalization)
  Sender: FDA-Public Use
  Company Number: 2009001376

PATIENT
  Age: 41 Year
  Sex: Male

DRUGS (15)
  1. ERLOTINIB (ERLOTINIB) (TABLET) (ERLOTINIB) [Suspect]
     Indication: PANCREATIC CARCINOMA METASTATIC
     Dosage: 100 MG, QD, ORAL
     Route: 048
     Dates: start: 20060303, end: 20060331
  2. BEVACIZUMAB [Suspect]
     Indication: PANCREATIC CARCINOMA METASTATIC
     Dates: start: 20060303, end: 20060331
  3. PANCREATIN TRIPLE STRENGTH CAP [Concomitant]
  4. LEVOMEPROMAZINE (LEVOMEPROMAZINE) [Concomitant]
  5. GRANISETRON  HCL [Concomitant]
  6. MORPHINE [Concomitant]
  7. MOVICOL (NULYTELY) [Concomitant]
  8. SCHERIPROCT (SCHERIPROCT N) [Concomitant]
  9. LOPERAMIDE [Concomitant]
  10. CO DANTHRAMER [Concomitant]
  11. MINERAL OIL EMULSION (MINERAL OIL EMULSION) [Concomitant]
  12. METOCLOPRAMIDE [Concomitant]
  13. MORPHINE SULFATE [Concomitant]
  14. CAPECITABINE (CAPECITABINE) [Suspect]
     Indication: PANCREATIC CARCINOMA METASTATIC
     Dates: start: 20060303, end: 20060331
  15. GEMCITABINE [Suspect]
     Indication: PANCREATIC CARCINOMA METASTATIC
     Dates: start: 20060303, end: 20060331

REACTIONS (3)
  - DEEP VEIN THROMBOSIS [None]
  - PULMONARY EMBOLISM [None]
  - THROMBOSIS [None]
